FAERS Safety Report 12256125 (Version 2)
Quarter: 2016Q2

REPORT INFORMATION
  Report Type: Spontaneous
  Country: US (occurrence: US)
  Receive Date: 20160412
  Receipt Date: 20160502
  Transmission Date: 20160815
  Serious: No
  Sender: FDA-Public Use
  Company Number: US-PFIZER INC-2016203559

PATIENT

DRUGS (1)
  1. ADVIL [Suspect]
     Active Substance: IBUPROFEN
     Dosage: UNK

REACTIONS (5)
  - Poor quality drug administered [Unknown]
  - Insomnia [Unknown]
  - Product physical issue [Unknown]
  - Glossodynia [Not Recovered/Not Resolved]
  - Eating disorder [Unknown]
